FAERS Safety Report 9055937 (Version 1)
Quarter: 2013Q1

REPORT INFORMATION
  Report Type: Spontaneous
  Country: US (occurrence: US)
  Receive Date: 20130206
  Receipt Date: 20130206
  Transmission Date: 20140127
  Serious: No
  Sender: FDA-Public Use
  Company Number: US-ALLERGAN-1200480US

PATIENT
  Sex: Female

DRUGS (4)
  1. RESTASIS [Suspect]
     Indication: DRY EYE
     Dosage: 2 GTT, BID
     Route: 047
     Dates: start: 201112
  2. SYSTANE [Concomitant]
     Indication: DRY EYE
     Dosage: UNK
     Route: 047
  3. GENTEEL [Concomitant]
     Indication: DRY EYE
     Dosage: UNK
     Route: 047
  4. REFRESH PLUS [Concomitant]
     Indication: DRY EYE
     Dosage: UNK

REACTIONS (5)
  - Incorrect dose administered [Unknown]
  - Eye irritation [Not Recovered/Not Resolved]
  - Eye pruritus [Not Recovered/Not Resolved]
  - Scleral hyperaemia [Not Recovered/Not Resolved]
  - Eye discharge [Not Recovered/Not Resolved]
